FAERS Safety Report 14246630 (Version 1)
Quarter: 2017Q4

REPORT INFORMATION
  Report Type: Spontaneous
  Country: US (occurrence: US)
  Receive Date: 20171201
  Receipt Date: 20171201
  Transmission Date: 20180321
  Serious: Yes (Disabling)
  Sender: FDA-Public Use
  Company Number: None

PATIENT
  Age: 41 Year
  Sex: Female
  Weight: 67.5 kg

DRUGS (3)
  1. MAGNESIUM [Concomitant]
     Active Substance: MAGNESIUM
  2. FISH OIL [Concomitant]
     Active Substance: FISH OIL
  3. MRI CONTRAST AGENT (GADOLINIUM) [Suspect]
     Active Substance: GADOLINIUM
     Indication: NUCLEAR MAGNETIC RESONANCE IMAGING
     Dates: start: 20110101

REACTIONS (3)
  - Drug level increased [None]
  - Unevaluable event [None]
  - Contrast media deposition [None]

NARRATIVE: CASE EVENT DATE: 20110101
